FAERS Safety Report 20108479 (Version 1)
Quarter: 2021Q4

REPORT INFORMATION
  Report Type: Spontaneous
  Country: US (occurrence: US)
  Receive Date: 20211124
  Receipt Date: 20211124
  Transmission Date: 20220303
  Serious: No
  Sender: FDA-Public Use
  Company Number: US-PERRIGO-21US011882

PATIENT
  Age: 78 Year
  Sex: Female
  Weight: 44.444 kg

DRUGS (5)
  1. POLYETHYLENE GLYCOL 3350 [Suspect]
     Active Substance: POLYETHYLENE GLYCOL 3350
     Indication: Diarrhoea
     Dosage: 17 G, SINGLE
     Route: 048
     Dates: start: 20210822, end: 20210822
  2. POLYETHYLENE GLYCOL 3350 [Suspect]
     Active Substance: POLYETHYLENE GLYCOL 3350
     Indication: Off label use
     Dosage: 17 G, BID
     Route: 048
     Dates: start: 20210823, end: 20210823
  3. POLYETHYLENE GLYCOL 3350 [Suspect]
     Active Substance: POLYETHYLENE GLYCOL 3350
     Dosage: 51 G, SINGLE
     Route: 048
     Dates: start: 20210824, end: 20210824
  4. CITRUCEL [Concomitant]
     Active Substance: METHYLCELLULOSE (4000 MPA.S)
     Indication: Diarrhoea
     Dosage: UNKNOWN, UNKNOWN
     Route: 065
     Dates: start: 2019
  5. IMODIUM [Concomitant]
     Active Substance: LOPERAMIDE HYDROCHLORIDE
     Indication: Diarrhoea
     Dosage: UNKNOWN, PRN
     Route: 065

REACTIONS (3)
  - Condition aggravated [Not Recovered/Not Resolved]
  - Drug ineffective for unapproved indication [Unknown]
  - Overdose [Recovered/Resolved]

NARRATIVE: CASE EVENT DATE: 20210822
